FAERS Safety Report 17275873 (Version 1)
Quarter: 2020Q1

REPORT INFORMATION
  Report Type: Spontaneous
  Country: US (occurrence: US)
  Receive Date: 20191226
  Receipt Date: 20191226
  Transmission Date: 20200409
  Serious: Yes (Hospitalization)
  Sender: FDA-Public Use
  Company Number: None

PATIENT
  Age: 58 Year
  Sex: Male

DRUGS (11)
  1. TACROLIMUS 1MG CAP [Suspect]
     Active Substance: TACROLIMUS
     Indication: RENAL TRANSPLANT
     Dosage: ?          OTHER DOSE:1 CAP;?
     Route: 051
     Dates: start: 20180306
  2. DILTIAZEM. [Concomitant]
     Active Substance: DILTIAZEM
  3. LOSARTAN POT [Concomitant]
     Active Substance: LOSARTAN POTASSIUM
  4. CARVEDILOL. [Concomitant]
     Active Substance: CARVEDILOL
  5. GLIPIZIDE. [Concomitant]
     Active Substance: GLIPIZIDE
  6. GLIPIZIDE ER [Concomitant]
     Active Substance: GLIPIZIDE
  7. PREDNISONE. [Concomitant]
     Active Substance: PREDNISONE
  8. ATORVASTATIN [Concomitant]
     Active Substance: ATORVASTATIN
  9. INVOKANA [Concomitant]
     Active Substance: CANAGLIFLOZIN
  10. CLONIDINE. [Concomitant]
     Active Substance: CLONIDINE
  11. POT CHLORIDE [Concomitant]
     Active Substance: POTASSIUM CHLORIDE

REACTIONS (1)
  - Surgery [None]

NARRATIVE: CASE EVENT DATE: 201911
